FAERS Safety Report 5345867-8 (Version None)
Quarter: 2007Q2

REPORT INFORMATION
  Report Type: 
  Country: None (occurrence: None)
  Receive Date: 20070605
  Receipt Date: 20070525
  Transmission Date: 20071010
  Serious: Yes (Death, Other)
  Sender: FDA-Public Use
  Company Number: HQWYE893327APR07

PATIENT
  Age: 90 Year
  Sex: Female

DRUGS (2)
  1. AMIODARONE HCL [Suspect]
     Indication: ARRHYTHMIA
     Route: 048
  2. THYRADIN-S [Concomitant]
     Indication: HYPOTHYROIDISM
     Dosage: UNKNOWN
     Route: 065

REACTIONS (5)
  - BLOOD GLUCOSE DECREASED [None]
  - COMA [None]
  - CONDITION AGGRAVATED [None]
  - DEATH [None]
  - HYPOTHYROIDISM [None]
